FAERS Safety Report 17750388 (Version 4)
Quarter: 2020Q3

REPORT INFORMATION
  Report Type: Spontaneous
  Country: US (occurrence: US)
  Receive Date: 20200506
  Receipt Date: 20200824
  Transmission Date: 20201102
  Serious: Yes (Other)
  Sender: FDA-Public Use
  Company Number: US-PFIZER INC-2020180785

PATIENT
  Age: 62 Year
  Sex: Female
  Weight: 81.65 kg

DRUGS (3)
  1. IBRANCE [Suspect]
     Active Substance: PALBOCICLIB
     Indication: BREAST CANCER METASTATIC
     Dosage: 125 MG, CYCLIC (ONCE A DAY FOR 21 DAYS/DAILY FOR 21 DAYS THEN 7 DAYS OFF)
     Route: 048
     Dates: start: 20200307, end: 2020
  2. IBRANCE [Suspect]
     Active Substance: PALBOCICLIB
     Indication: BREAST CANCER FEMALE
  3. FASLODEX [Concomitant]
     Active Substance: FULVESTRANT
     Indication: BREAST CANCER METASTATIC
     Dosage: UNK, MONTHLY (BONE INFUSION)

REACTIONS (7)
  - Nausea [Not Recovered/Not Resolved]
  - Dyspepsia [Unknown]
  - Neoplasm progression [Unknown]
  - Abdominal discomfort [Not Recovered/Not Resolved]
  - White blood cell count decreased [Not Recovered/Not Resolved]
  - Fatigue [Unknown]
  - Abdominal distension [Unknown]

NARRATIVE: CASE EVENT DATE: 2020
